FAERS Safety Report 19953809 (Version 1)
Quarter: 2021Q4

REPORT INFORMATION
  Report Type: Other
  Country: PL (occurrence: PL)
  Receive Date: 20211013
  Receipt Date: 20211013
  Transmission Date: 20220303
  Serious: Yes (Other)
  Sender: FDA-Public Use
  Company Number: PL-B.BRAUN MEDICAL INC.-2120514

PATIENT
  Age: 16 Month
  Sex: Female

DRUGS (1)
  1. MANNITOL [Suspect]
     Active Substance: MANNITOL
     Indication: Brain oedema

REACTIONS (1)
  - Drug ineffective [None]
